FAERS Safety Report 17169195 (Version 1)
Quarter: 2019Q4

REPORT INFORMATION
  Report Type: Spontaneous
  Country: SE (occurrence: SE)
  Receive Date: 20191218
  Receipt Date: 20191218
  Transmission Date: 20200122
  Serious: Yes (Hospitalization)
  Sender: FDA-Public Use
  Company Number: SE-009507513-1912SWE005147

PATIENT
  Age: 16 Year
  Sex: Female

DRUGS (4)
  1. OXASCAND [Suspect]
     Active Substance: OXAZEPAM
     Dosage: UNK
     Route: 048
     Dates: start: 20181121, end: 20181121
  2. PROPAVAN [Suspect]
     Active Substance: PROPIOMAZINE
     Dosage: 375 MILLIGRAM
     Route: 048
     Dates: start: 20181121, end: 20181121
  3. MIRTAZAPINE. [Suspect]
     Active Substance: MIRTAZAPINE
     Dosage: UNK
     Route: 048
     Dates: start: 20181121, end: 20181121
  4. THERALEN [Suspect]
     Active Substance: TRIMEPRAZINE
     Dosage: 500 MILLIGRAM
     Route: 048
     Dates: start: 20181121, end: 20181121

REACTIONS (2)
  - Intentional overdose [Unknown]
  - Intentional self-injury [Unknown]

NARRATIVE: CASE EVENT DATE: 20181121
